FAERS Safety Report 18610539 (Version 1)
Quarter: 2020Q4

REPORT INFORMATION
  Report Type: Spontaneous
  Country: US (occurrence: US)
  Receive Date: 20201211
  Receipt Date: 20201211
  Transmission Date: 20210114
  Serious: Yes (Hospitalization)
  Sender: FDA-Public Use
  Company Number: None

PATIENT
  Age: 27 Year
  Sex: Male

DRUGS (3)
  1. PREDNISONE. [Suspect]
     Active Substance: PREDNISONE
  2. GLATIRAMER 40MG/ML SYR [Suspect]
     Active Substance: GLATIRAMER
     Indication: MULTIPLE SCLEROSIS
     Dosage: ?          OTHER DOSE:1 PRE-FILLED SYR;OTHER FREQUENCY:M-W-F;OTHER ROUTE:AS DIRECTED BY MD?
     Dates: start: 20150828
  3. FAMOTIDINE. [Suspect]
     Active Substance: FAMOTIDINE

REACTIONS (2)
  - Vision blurred [None]
  - Mobility decreased [None]

NARRATIVE: CASE EVENT DATE: 20200927
